FAERS Safety Report 15592249 (Version 1)
Quarter: 2018Q4

REPORT INFORMATION
  Report Type: Spontaneous
  Country: US (occurrence: US)
  Receive Date: 20181106
  Receipt Date: 20181106
  Transmission Date: 20190205
  Serious: No
  Sender: FDA-Public Use
  Company Number: US-B.I. PHARMACEUTICALS,INC./RIDGEFIELD-2018-BI-052902

PATIENT
  Age: 69 Year
  Sex: Female

DRUGS (4)
  1. WARFARIN [Concomitant]
     Active Substance: WARFARIN
     Indication: DEEP VEIN THROMBOSIS
     Route: 065
  2. SYNJARDY XR [Suspect]
     Active Substance: EMPAGLIFLOZIN\METFORMIN HYDROCHLORIDE
     Indication: TYPE 2 DIABETES MELLITUS
     Dosage: ONCE A DAY;  FORM STRENGTH: 12.5 MG / 1000 MG; FORMULATION: TABLET??ACTION(S) TAKEN : DRUG WITHDRAWN
     Route: 048
     Dates: start: 201803, end: 201806
  3. LANTUS [Concomitant]
     Active Substance: INSULIN GLARGINE
     Indication: PRODUCT USED FOR UNKNOWN INDICATION
     Dosage: TWICE A DAY;  FORM STRENGTH: 100 UNITS
     Route: 058
  4. HUMALOG [Concomitant]
     Active Substance: INSULIN LISPRO
     Indication: PRODUCT USED FOR UNKNOWN INDICATION
     Dosage: 3 TIMES A DAY;  FORM STRENGTH: 50 UNITS
     Route: 058

REACTIONS (4)
  - Dysuria [Not Recovered/Not Resolved]
  - Penile infection [Not Recovered/Not Resolved]
  - Penile swelling [Not Recovered/Not Resolved]
  - Penis disorder [Not Recovered/Not Resolved]

NARRATIVE: CASE EVENT DATE: 201804
